FAERS Safety Report 13185089 (Version 1)
Quarter: 2017Q1

REPORT INFORMATION
  Report Type: Spontaneous
  Country: US (occurrence: US)
  Receive Date: 20170203
  Receipt Date: 20170203
  Transmission Date: 20170428
  Serious: Yes (Other)
  Sender: FDA-Public Use
  Company Number: US-MYLANLABS-2017M1005779

PATIENT

DRUGS (4)
  1. BACLOFEN. [Suspect]
     Active Substance: BACLOFEN
     Dosage: BACLOFEN DOSE WAS TITRATED DOWN TO 215 MICROG/DAY
     Route: 037
  2. BACLOFEN. [Suspect]
     Active Substance: BACLOFEN
     Dosage: 700 MICROG/DAY
     Route: 037
  3. BACLOFEN. [Suspect]
     Active Substance: BACLOFEN
     Indication: SPINAL CORD INJURY CERVICAL
     Dosage: INITIAL DOSE UNKNOWN, THEN DOSE INCREASED
     Route: 048
  4. BACLOFEN. [Suspect]
     Active Substance: BACLOFEN
     Dosage: INITAL DOSE STARTED AT APPROX 150 MICROG/DAY, INCREASED TO 700 MICROG/DAY
     Route: 037

REACTIONS (3)
  - Sedation [Unknown]
  - Urinary retention [Unknown]
  - Erectile dysfunction [Unknown]
